FAERS Safety Report 15268945 (Version 2)
Quarter: 2018Q3

REPORT INFORMATION
  Report Type: Report from Study
  Country: CA (occurrence: CA)
  Receive Date: 20180813
  Receipt Date: 20180824
  Transmission Date: 20181010
  Serious: No
  Sender: FDA-Public Use
  Company Number: CA-ROCHE-2167436

PATIENT
  Sex: Male

DRUGS (1)
  1. OCREVUS [Suspect]
     Active Substance: OCRELIZUMAB
     Indication: RELAPSING-REMITTING MULTIPLE SCLEROSIS
     Dosage: 300 MG DAY 0 AND DAY14, THEN 600MG EVERY 6 MONTHS
     Route: 042
     Dates: start: 20180305

REACTIONS (1)
  - No adverse event [Unknown]
